FAERS Safety Report 5946732-5 (Version None)
Quarter: 2008Q4

REPORT INFORMATION
  Report Type: 
  Country: None (occurrence: None)
  Receive Date: 20081107
  Receipt Date: 20081107
  Transmission Date: 20090506
  Serious: Yes (Other)
  Sender: FDA-Public Use
  Company Number: None

PATIENT
  Age: 95 Year
  Sex: Female
  Weight: 85 kg

DRUGS (1)
  1. DILANTIN [Suspect]
     Indication: CONVULSION
     Dosage: 160 MG TWICE DAILY IV
     Route: 042
     Dates: start: 20080728, end: 20080729

REACTIONS (1)
  - STEVENS-JOHNSON SYNDROME [None]
